FAERS Safety Report 16175002 (Version 1)
Quarter: 2019Q2

REPORT INFORMATION
  Report Type: Spontaneous
  Country: US (occurrence: US)
  Receive Date: 20190409
  Receipt Date: 20190409
  Transmission Date: 20190711
  Serious: No
  Sender: FDA-Public Use
  Company Number: US-PERRIGO-18US005030

PATIENT
  Age: 71 Year
  Sex: Male
  Weight: 81.63 kg

DRUGS (7)
  1. ALLEGRA [Concomitant]
     Active Substance: FEXOFENADINE HYDROCHLORIDE
     Indication: SEASONAL ALLERGY
     Dosage: UNKNOWN, UNKNOWN
     Route: 065
  2. IBUPROFEN. [Concomitant]
     Active Substance: IBUPROFEN
     Indication: ARTHRITIS
     Dosage: UNKNOWN, PRN
     Route: 065
  3. ROPINIROLE. [Concomitant]
     Active Substance: ROPINIROLE
     Indication: RESTLESS LEGS SYNDROME
     Dosage: 25 MG, UNKNOWN
     Route: 065
  4. GABAPENTIN. [Concomitant]
     Active Substance: GABAPENTIN
     Indication: NEURALGIA
     Dosage: 300 MG, UNKNOWN
     Route: 065
  5. ANTACID                            /07357001/ [Concomitant]
     Indication: DYSPEPSIA
     Dosage: UNKNOWN, PRN
     Route: 065
  6. ACETAMINOPHEN. [Suspect]
     Active Substance: ACETAMINOPHEN
     Indication: ARTHRALGIA
     Dosage: 1/2 TABLET TO 650 MG, QD
     Route: 048
     Dates: start: 20180409, end: 20180503
  7. ACETAMINOPHEN. [Suspect]
     Active Substance: ACETAMINOPHEN
     Dosage: 650 MG, PRN
     Route: 048
     Dates: start: 201805

REACTIONS (4)
  - Bleeding time prolonged [Recovered/Resolved]
  - Incorrect product administration duration [Unknown]
  - Wrong technique in product usage process [Recovered/Resolved]
  - Underdose [Recovered/Resolved]

NARRATIVE: CASE EVENT DATE: 20180409
